FAERS Safety Report 8385157-2 (Version None)
Quarter: 2012Q2

REPORT INFORMATION
  Report Type: 
  Country: None (occurrence: None)
  Receive Date: 20120525
  Receipt Date: 20120522
  Transmission Date: 20120825
  Serious: Yes (Other)
  Sender: FDA-Public Use
  Company Number: US-AMGEN-USASP2012032251

PATIENT
  Age: 78 Year
  Sex: Female

DRUGS (8)
  1. NIFEDIPINE [Concomitant]
  2. PROLIA [Suspect]
     Indication: OSTEOPOROSIS POSTMENOPAUSAL
     Dates: start: 20120406
  3. LISINOPRIL [Concomitant]
  4. NAUSEA CONTROL [Concomitant]
  5. OMEPRAZOLE [Concomitant]
  6. FOLIC ACID [Concomitant]
  7. STATIN                             /00036501/ [Concomitant]
     Indication: BLOOD CHOLESTEROL ABNORMAL
  8. THYROID THERAPY [Concomitant]

REACTIONS (4)
  - ASTHENIA [None]
  - BLOOD PHOSPHORUS DECREASED [None]
  - BLOOD PRESSURE SYSTOLIC INCREASED [None]
  - PROTEIN TOTAL DECREASED [None]
